FAERS Safety Report 19218385 (Version 3)
Quarter: 2021Q2

REPORT INFORMATION
  Report Type: Report from Study
  Country: CA (occurrence: CA)
  Receive Date: 20210505
  Receipt Date: 20210518
  Transmission Date: 20210717
  Serious: Yes (Hospitalization, Other)
  Sender: FDA-Public Use
  Company Number: CA-HLS-202107449

PATIENT
  Age: 55 Year
  Sex: Female

DRUGS (1)
  1. CLOZARIL [Suspect]
     Active Substance: CLOZAPINE
     Indication: PRODUCT USED FOR UNKNOWN INDICATION
     Route: 048
     Dates: start: 20190409, end: 20210430

REACTIONS (11)
  - Heart rate increased [Unknown]
  - Chills [Unknown]
  - Escherichia infection [Unknown]
  - Fatigue [Unknown]
  - Vomiting [Unknown]
  - Diarrhoea [Unknown]
  - Leukopenia [Not Recovered/Not Resolved]
  - Illness [Unknown]
  - Neutropenia [Not Recovered/Not Resolved]
  - Hypotension [Unknown]
  - Tremor [Unknown]

NARRATIVE: CASE EVENT DATE: 20210430
